FAERS Safety Report 6623097 (Version 5)
Quarter: 2013Q3

REPORT INFORMATION
  Report Type: Spontaneous
  Country: US (occurrence: US)
  Receive Date: 20080424
  Receipt Date: 20130813
  Transmission Date: 20140515
  Serious: Yes (Other)
  Sender: FDA-Public Use
  Company Number: PHEH2008US03865

PATIENT
  Age: 72 Year
  Sex: Male
  Weight: 74.83 kg

DRUGS (30)
  1. AREDIA [Suspect]
     Dosage: 90 MG, Q12H
     Dates: start: 20020514
  2. ZOMETA [Suspect]
  3. MELPHALAN [Concomitant]
     Dates: start: 200203, end: 200302
  4. PREDNISONE [Concomitant]
     Route: 048
     Dates: start: 200203, end: 200302
  5. ACIPHEX [Concomitant]
     Dosage: 20 MG, QD
     Route: 048
  6. PHOSLO [Concomitant]
  7. FLOMAX ^BOEHRINGER INGELHEIM^ [Concomitant]
     Route: 048
  8. EPOGEN [Concomitant]
     Dosage: 40000 U, QW
     Dates: start: 20020403
  9. PROCARDIA [Concomitant]
  10. VELCADE [Concomitant]
     Dates: start: 200201
  11. COMPAZINE [Concomitant]
     Dosage: 10 MG, PRN
     Route: 048
  12. DEXAMETHASONE [Concomitant]
     Dates: start: 200201, end: 200203
  13. GLUCOSAMINE [Concomitant]
     Dosage: 500 MG, BID
     Route: 048
  14. VITAMIN B [Concomitant]
     Route: 048
  15. VITAMIN D [Concomitant]
     Dosage: 400 U, QD
     Route: 048
  16. LICORICE [Concomitant]
     Route: 048
  17. PROCRIT                            /00909301/ [Concomitant]
     Dosage: 20000 U, PRN
     Route: 058
  18. NORVASC                                 /DEN/ [Concomitant]
     Route: 048
  19. CEPHALEXIN [Concomitant]
     Route: 048
  20. HERBAL EXTRACTS NOS [Concomitant]
     Route: 048
  21. IRON [Concomitant]
     Route: 048
  22. VITAMIN A + D + CALCIUM [Concomitant]
     Route: 048
  23. ZITHROMAX ^HEINRICH MACK^ [Concomitant]
     Dates: start: 20060117
  24. ASPIRIN ^BAYER^ [Concomitant]
     Dosage: 325 MG, QW
  25. VITAMIN C [Concomitant]
  26. VITAMIN E [Concomitant]
  27. MINERAL SUPPLEMENTS [Concomitant]
  28. ZINC ^AGUETTANT^ [Concomitant]
  29. ATENOLOL [Concomitant]
     Dosage: 25 MG, QD
  30. FLUVACCIN [Concomitant]

REACTIONS (56)
  - Osteonecrosis of jaw [Unknown]
  - Pain [Unknown]
  - Infection [Unknown]
  - Scar [Unknown]
  - Injury [Unknown]
  - Emotional distress [Unknown]
  - Anxiety [Unknown]
  - Physical disability [Unknown]
  - Upper limb fracture [Unknown]
  - Hip fracture [Unknown]
  - Arthralgia [Unknown]
  - Pain in jaw [Unknown]
  - Oral disorder [Unknown]
  - Toothache [Unknown]
  - Hyperkalaemia [Unknown]
  - Anaemia [Unknown]
  - Osteitis [Unknown]
  - Gingivitis [Unknown]
  - Abscess jaw [Unknown]
  - Purulent discharge [Unknown]
  - Basal cell carcinoma [Unknown]
  - Squamous cell carcinoma [Unknown]
  - Cataract [Unknown]
  - Sinusitis [Unknown]
  - Cough [Unknown]
  - Bronchitis [Unknown]
  - Rhinorrhoea [Unknown]
  - Nasopharyngitis [Unknown]
  - Eustachian tube dysfunction [Unknown]
  - Renal failure chronic [Unknown]
  - Pollakiuria [Unknown]
  - Osteopenia [Unknown]
  - Osteolysis [Unknown]
  - Chest wall abscess [Unknown]
  - Infected dermal cyst [Unknown]
  - Hypoacusis [Unknown]
  - Lymph node calcification [Unknown]
  - Hypermetabolism [Unknown]
  - Granuloma [Unknown]
  - Splenic granuloma [Unknown]
  - Arteriosclerosis coronary artery [Unknown]
  - Haemoglobin decreased [Unknown]
  - Dehydration [Recovered/Resolved]
  - Fatigue [Unknown]
  - Sinus bradycardia [Unknown]
  - Aortic dilatation [Unknown]
  - Sinus headache [Unknown]
  - Light chain analysis abnormal [Unknown]
  - Arthritis [Unknown]
  - Bone lesion [Unknown]
  - Bacterial infection [Unknown]
  - Wrist fracture [Unknown]
  - Pathological fracture [Unknown]
  - Metastases to bone [Unknown]
  - Vascular calcification [Unknown]
  - Osteoarthritis [Unknown]
